FAERS Safety Report 7672372-6 (Version None)
Quarter: 2011Q3

REPORT INFORMATION
  Report Type: 
  Country: None (occurrence: None)
  Receive Date: 20110809
  Receipt Date: 20110728
  Transmission Date: 20111222
  Serious: Yes (Death, Hospitalization, Other)
  Sender: FDA-Public Use
  Company Number: US-BAYER-200941697NA

PATIENT
  Age: 71 Year
  Sex: Female
  Weight: 72.562 kg

DRUGS (28)
  1. PROTAMINE [Concomitant]
     Dosage: UNK
     Route: 042
     Dates: start: 19980619
  2. VANCOMYCIN [Concomitant]
     Dosage: 1 G, UNK
     Route: 042
     Dates: start: 19980619
  3. TRASYLOL [Suspect]
     Dosage: 200 ML, PUMP PRIME
     Route: 042
     Dates: start: 19980619, end: 19980619
  4. METOPROLOL TARTRATE [Concomitant]
  5. LOPRESSOR [Concomitant]
     Dosage: 25 MG, BID
     Route: 048
  6. LIDOCAINE [Concomitant]
     Dosage: UNK
     Route: 042
     Dates: start: 19980619
  7. PHENYLEPHRINE HCL [Concomitant]
     Dosage: UNK
     Route: 042
     Dates: start: 19980619
  8. CEFAZOLIN [Concomitant]
     Dosage: 2 G, UNK
     Route: 042
     Dates: start: 19980619
  9. HEPARIN [Concomitant]
     Dosage: 22000 U, UNK
     Route: 042
     Dates: start: 19980619
  10. ACETYLSALICYLIC ACID SRT [Concomitant]
     Dosage: 1 DAILY
     Route: 048
  11. NAPROXEN [Concomitant]
     Dosage: 500 MG, PRN
     Route: 048
  12. RED BLOOD CELLS [Concomitant]
     Dosage: 3 U, UNK
     Route: 042
     Dates: start: 19980619
  13. TRASYLOL [Suspect]
     Indication: CORONARY ARTERY BYPASS
     Dosage: 1 ML, ONCE
     Route: 042
     Dates: start: 19980619, end: 19980619
  14. LISINOPRIL [Concomitant]
     Dosage: UNK
     Dates: start: 19980101
  15. AXID [Concomitant]
     Dosage: 150 MG, BID
     Route: 048
  16. GLUCOTROL XL [Concomitant]
     Dosage: 10 MG, BID
     Route: 048
  17. PROPULSID [Concomitant]
     Dosage: 10 MG, QD
     Route: 048
  18. ZESTRIL [Concomitant]
     Dosage: 20 MG, QD
     Route: 048
  19. LIBRAX [Concomitant]
     Dosage: 1 CAPSULE, TWICE A DAY
     Route: 048
  20. FENTANYL [Concomitant]
     Dosage: UNK
     Route: 042
     Dates: start: 19980619
  21. PAVULON [Concomitant]
     Dosage: UNK
     Route: 042
     Dates: start: 19980619
  22. PREVACID [Concomitant]
     Dosage: 30 MG, BID
     Route: 048
  23. NITROGLYCERIN [Concomitant]
     Dosage: UNK
     Route: 042
     Dates: start: 19980619
  24. ADVIL LIQUI-GELS [Concomitant]
  25. INSULIN [Concomitant]
  26. HEPARIN [Concomitant]
  27. INSULIN [Concomitant]
     Dosage: 30 U, UNK
     Route: 042
     Dates: start: 19980619
  28. PROPOFOL [Concomitant]
     Dosage: UNK
     Route: 042
     Dates: start: 19980619

REACTIONS (14)
  - STRESS [None]
  - RENAL FAILURE [None]
  - RENAL INJURY [None]
  - INJURY [None]
  - RENAL IMPAIRMENT [None]
  - ANXIETY [None]
  - ANHEDONIA [None]
  - EMOTIONAL DISTRESS [None]
  - FEAR [None]
  - CEREBROVASCULAR ACCIDENT [None]
  - PAIN [None]
  - DEATH [None]
  - MULTI-ORGAN FAILURE [None]
  - UNEVALUABLE EVENT [None]
